FAERS Safety Report 11927319 (Version 5)
Quarter: 2016Q2

REPORT INFORMATION
  Report Type: Spontaneous
  Country: FR (occurrence: FR)
  Receive Date: 20160119
  Receipt Date: 20160520
  Transmission Date: 20160815
  Serious: Yes (Life-Threatening, Hospitalization)
  Sender: FDA-Public Use
  Company Number: FR-SA-2016SA008108

PATIENT
  Age: 36 Year
  Sex: Female
  Weight: 71 kg

DRUGS (17)
  1. RIFINAH [Suspect]
     Active Substance: ISONIAZID\RIFAMPIN
     Indication: TUBERCULOSIS
     Route: 065
     Dates: start: 20080506, end: 20080611
  2. IZILOX [Suspect]
     Active Substance: MOXIFLOXACIN HYDROCHLORIDE
     Indication: TUBERCULOSIS
     Route: 065
     Dates: start: 20080728, end: 20080821
  3. PIRILENE [Suspect]
     Active Substance: PYRAZINAMIDE
     Indication: TUBERCULOSIS
     Route: 065
     Dates: start: 20080729, end: 20080811
  4. RIFADINE [Suspect]
     Active Substance: RIFAMPIN
     Indication: TUBERCULOSIS
     Dosage: STRENGTH:300 MG (TAB)?STRENGTH: 100 MG (ORAL SOLUTION)
     Route: 065
     Dates: start: 20080802
  5. ETHAMBUTOL [Suspect]
     Active Substance: ETHAMBUTOL HYDROCHLORIDE
     Indication: TUBERCULOSIS
     Route: 065
     Dates: start: 200802, end: 20080506
  6. ETHAMBUTOL [Suspect]
     Active Substance: ETHAMBUTOL HYDROCHLORIDE
     Indication: TUBERCULOSIS
     Route: 065
     Dates: start: 20080717, end: 20080729
  7. MYAMBUTOL [Suspect]
     Active Substance: ETHAMBUTOL HYDROCHLORIDE
     Indication: TUBERCULOSIS
     Route: 065
     Dates: start: 20080717
  8. PYRAZINAMIDE. [Concomitant]
     Active Substance: PYRAZINAMIDE
     Dates: start: 20080729, end: 20080811
  9. XANAX [Concomitant]
     Active Substance: ALPRAZOLAM
     Dates: start: 20080614, end: 20150624
  10. RIFADINE [Suspect]
     Active Substance: RIFAMPIN
     Indication: TUBERCULOSIS
     Route: 065
  11. AMIKLIN [Concomitant]
     Active Substance: AMIKACIN SULFATE
     Indication: BONE TUBERCULOSIS
     Dates: start: 20080717, end: 20080801
  12. RIFATER [Suspect]
     Active Substance: ISONIAZID\PYRAZINAMIDE\RIFAMPIN
     Indication: TUBERCULOSIS
     Route: 065
     Dates: start: 200802, end: 20080506
  13. TRANSIPEG [Concomitant]
     Active Substance: POLYETHYLENE GLYCOL 3350
     Dates: start: 20080614, end: 20150624
  14. PIRILENE [Suspect]
     Active Substance: PYRAZINAMIDE
     Indication: TUBERCULOSIS
     Route: 065
     Dates: start: 200802, end: 20080506
  15. RIFATER [Suspect]
     Active Substance: ISONIAZID\PYRAZINAMIDE\RIFAMPIN
     Indication: TUBERCULOSIS
     Route: 065
     Dates: start: 20080716
  16. RIFADINE [Suspect]
     Active Substance: RIFAMPIN
     Indication: TUBERCULOSIS
     Dosage: STRENGTH:300 MG
     Route: 065
     Dates: start: 20080717, end: 20080801
  17. SPASFON [Concomitant]
     Active Substance: PHLOROGLUCINOL
     Dates: start: 20080614, end: 20150624

REACTIONS (12)
  - Abdominal distension [Recovered/Resolved]
  - Hepatitis fulminant [Recovered/Resolved with Sequelae]
  - Coma [Unknown]
  - Nausea [Recovered/Resolved]
  - Vomiting [Recovered/Resolved]
  - Malaise [Recovered/Resolved with Sequelae]
  - Hepatic encephalopathy [Unknown]
  - Fatigue [Recovered/Resolved with Sequelae]
  - Exposure during pregnancy [Unknown]
  - Dry skin [Recovered/Resolved]
  - Cholestasis [Recovered/Resolved]
  - Hepatocellular injury [Recovered/Resolved]

NARRATIVE: CASE EVENT DATE: 20080611
